FAERS Safety Report 7595973-2 (Version None)
Quarter: 2011Q3

REPORT INFORMATION
  Report Type: 
  Country: None (occurrence: None)
  Receive Date: 20110707
  Receipt Date: 20110624
  Transmission Date: 20111222
  Serious: Yes (Hospitalization)
  Sender: FDA-Public Use
  Company Number: PHHY2011JP56837

PATIENT
  Sex: Male
  Weight: 71 kg

DRUGS (1)
  1. ZOMETA [Suspect]
     Indication: BONE CANCER METASTATIC
     Dosage: 4 MG, (SINGLE DOSE)
     Route: 041
     Dates: start: 20110429

REACTIONS (2)
  - PAIN IN EXTREMITY [None]
  - RHABDOMYOLYSIS [None]
